FAERS Safety Report 15159531 (Version 2)
Quarter: 2018Q3

REPORT INFORMATION
  Report Type: Spontaneous
  Country: US (occurrence: US)
  Receive Date: 20180718
  Receipt Date: 20180824
  Transmission Date: 20181010
  Serious: Yes (Death, Hospitalization, Other)
  Sender: FDA-Public Use
  Company Number: US-PARI RESPIRATORY EQUIPMENT, INC.-2018PAR00039

PATIENT
  Sex: Male
  Weight: 84 kg

DRUGS (1)
  1. TOBRAMYCIN. [Suspect]
     Active Substance: TOBRAMYCIN
     Indication: CHRONIC RESPIRATORY FAILURE
     Dosage: 2.5 ML, 2X/DAY
     Route: 055
     Dates: start: 20180511

REACTIONS (3)
  - Sputum increased [Unknown]
  - Cardiogenic shock [Fatal]
  - Duchenne muscular dystrophy [Unknown]

NARRATIVE: CASE EVENT DATE: 2018
